FAERS Safety Report 22127016 (Version 1)
Quarter: 2023Q1

REPORT INFORMATION
  Report Type: Spontaneous
  Country: US (occurrence: US)
  Receive Date: 20230322
  Receipt Date: 20230322
  Transmission Date: 20230418
  Serious: No
  Sender: FDA-Public Use
  Company Number: US-TARO PHARMACEUTICALS USA INC.-2022TAR01305

PATIENT

DRUGS (1)
  1. TRETINOIN [Suspect]
     Active Substance: TRETINOIN
     Indication: Solar lentigo
     Dosage: UNK, PEA SIZE, TOPICALLY TO FACE
     Route: 061
     Dates: start: 202203, end: 202206

REACTIONS (2)
  - Application site dryness [Recovered/Resolved]
  - Off label use [Unknown]
